FAERS Safety Report 24855696 (Version 1)
Quarter: 2025Q1

REPORT INFORMATION
  Report Type: Spontaneous
  Country: FR (occurrence: FR)
  Receive Date: 20250117
  Receipt Date: 20250117
  Transmission Date: 20250409
  Serious: Yes (Other)
  Sender: RANBAXY
  Company Number: FR-SUN PHARMACEUTICAL INDUSTRIES LTD-2025RR-488563

PATIENT
  Age: 60 Year
  Sex: Female

DRUGS (1)
  1. ABIRATERONE [Suspect]
     Active Substance: ABIRATERONE
     Indication: Breast cancer
     Dosage: 2 GRAM, DAILY
     Route: 048
     Dates: start: 20241021, end: 20241031

REACTIONS (4)
  - Hyperbilirubinaemia [Recovered/Resolved]
  - Hypertension [Recovering/Resolving]
  - Asthenia [Recovering/Resolving]
  - Product dispensing error [Recovered/Resolved]

NARRATIVE: CASE EVENT DATE: 20241021
